FAERS Safety Report 8731326 (Version 2)
Quarter: 2012Q4

REPORT INFORMATION
  Report Type: 
  Country: JP (occurrence: JP)
  Receive Date: 20120820
  Receipt Date: 20120904
  Transmission Date: 20130627
  Serious: Yes (Death, Life-Threatening, Hospitalization)
  Sender: FDA-Public Use
  Company Number: JP-JNJFOC-20120806409

PATIENT
  Age: 49 Year
  Sex: Female
  Weight: 47.7 kg

DRUGS (12)
  1. REMICADE [Suspect]
     Indication: RHEUMATOID ARTHRITIS
     Dosage: 20th dose
     Route: 042
     Dates: start: 20120601
  2. REMICADE [Suspect]
     Indication: RHEUMATOID ARTHRITIS
     Route: 042
     Dates: start: 20111206
  3. REMICADE [Suspect]
     Indication: RHEUMATOID ARTHRITIS
     Route: 042
     Dates: start: 20100903
  4. REMICADE [Suspect]
     Indication: RHEUMATOID ARTHRITIS
     Route: 042
     Dates: start: 20090821
  5. PREDONINE [Suspect]
     Indication: RHEUMATOID ARTHRITIS
     Route: 048
  6. METHOTREXATE [Suspect]
     Indication: PRODUCT USED FOR UNKNOWN INDICATION
     Route: 048
  7. SEFMAZON [Concomitant]
     Indication: DEVICE RELATED INFECTION
     Route: 042
     Dates: start: 20120715, end: 20120728
  8. WARFARIN [Concomitant]
     Indication: DEEP VEIN THROMBOSIS
     Route: 048
  9. EDIROL [Concomitant]
     Indication: OSTEOPOROSIS
     Route: 048
     Dates: start: 20120507
  10. TAKEPRON [Concomitant]
     Indication: PROPHYLAXIS AGAINST GASTROINTESTINAL ULCER
     Route: 048
  11. FOLIAMIN [Concomitant]
     Route: 048
  12. BONALON [Concomitant]
     Route: 048

REACTIONS (8)
  - Disseminated intravascular coagulation [Fatal]
  - Infection [Fatal]
  - Septic shock [Fatal]
  - Metabolic acidosis [Unknown]
  - Hepatic function abnormal [Unknown]
  - Device related infection [Unknown]
  - Arthralgia [Unknown]
  - Platelet count decreased [Unknown]
